FAERS Safety Report 18011258 (Version 3)
Quarter: 2020Q3

REPORT INFORMATION
  Report Type: Spontaneous
  Country: US (occurrence: US)
  Receive Date: 20200712
  Receipt Date: 20200903
  Transmission Date: 20201103
  Serious: No
  Sender: FDA-Public Use
  Company Number: US-ASTRAZENECA-2020SE84983

PATIENT
  Age: 857 Month
  Sex: Female
  Weight: 62.1 kg

DRUGS (7)
  1. ALBUTEROL. [Concomitant]
     Active Substance: ALBUTEROL
  2. SPIRIVA [Concomitant]
     Active Substance: TIOTROPIUM BROMIDE MONOHYDRATE
     Indication: CHRONIC OBSTRUCTIVE PULMONARY DISEASE
     Dosage: 2.5 MCG
  3. SYMBICORT [Suspect]
     Active Substance: BUDESONIDE\FORMOTEROL FUMARATE DIHYDRATE
     Indication: CHRONIC OBSTRUCTIVE PULMONARY DISEASE
     Dosage: SYBMICORT 160/4.5 MCG. TWO PUFFS TWICE EACH DAY.
     Route: 055
  4. SPIRIVA [Concomitant]
     Active Substance: TIOTROPIUM BROMIDE MONOHYDRATE
     Indication: ASTHMA
     Dosage: 2.5 MCG
  5. SYMBICORT [Suspect]
     Active Substance: BUDESONIDE\FORMOTEROL FUMARATE DIHYDRATE
     Indication: BRONCHIAL DISORDER
     Dosage: SYBMICORT 160/4.5 MCG. TWO PUFFS TWICE EACH DAY.
     Route: 055
  6. SYMBICORT [Suspect]
     Active Substance: BUDESONIDE\FORMOTEROL FUMARATE DIHYDRATE
     Indication: BRONCHIAL DISORDER
     Dosage: SYBMICORT 80/4.5 MCG. TWO PUFFS TWICE EACH DAY
     Route: 055
  7. SYMBICORT [Suspect]
     Active Substance: BUDESONIDE\FORMOTEROL FUMARATE DIHYDRATE
     Indication: CHRONIC OBSTRUCTIVE PULMONARY DISEASE
     Dosage: SYBMICORT 80/4.5 MCG. TWO PUFFS TWICE EACH DAY
     Route: 055

REACTIONS (9)
  - Wrong technique in device usage process [Not Recovered/Not Resolved]
  - Off label use [Unknown]
  - Device use issue [Not Recovered/Not Resolved]
  - Intentional device misuse [Unknown]
  - Dry mouth [Not Recovered/Not Resolved]
  - Anxiety [Recovering/Resolving]
  - Incorrect dose administered by device [Unknown]
  - Device delivery system issue [Unknown]
  - Dysphonia [Not Recovered/Not Resolved]

NARRATIVE: CASE EVENT DATE: 202006
